FAERS Safety Report 11832725 (Version 2)
Quarter: 2015Q4

REPORT INFORMATION
  Report Type: Spontaneous
  Country: SI (occurrence: SI)
  Receive Date: 20151214
  Receipt Date: 20151218
  Transmission Date: 20160305
  Serious: Yes (Other)
  Sender: FDA-Public Use
  Company Number: SI-GLAXOSMITHKLINE-SI2015GSK174409

PATIENT
  Age: 30 Year
  Sex: Male

DRUGS (1)
  1. IMIGRAN INJECT [Suspect]
     Active Substance: SUMATRIPTAN SUCCINATE
     Indication: PRODUCT USED FOR UNKNOWN INDICATION
     Dosage: UNK
     Route: 058
     Dates: start: 20150901, end: 20151124

REACTIONS (3)
  - Drug ineffective [Unknown]
  - Headache [Unknown]
  - Product quality issue [Unknown]

NARRATIVE: CASE EVENT DATE: 20150901
